FAERS Safety Report 8926481 (Version 1)
Quarter: 2012Q4

REPORT INFORMATION
  Report Type: 
  Country: DE (occurrence: DE)
  Receive Date: 20121127
  Receipt Date: 20121127
  Transmission Date: 20130627
  Serious: Yes (Life-Threatening, Hospitalization)
  Sender: FDA-Public Use
  Company Number: DE-ELI_LILLY_AND_COMPANY-DE201211005287

PATIENT
  Age: 65 Year
  Sex: Female

DRUGS (3)
  1. EFIENT [Suspect]
     Dosage: 10 mg, qd
     Route: 048
     Dates: start: 2012, end: 2012
  2. ASS [Concomitant]
  3. TIROFIBAN [Concomitant]

REACTIONS (2)
  - Device occlusion [Recovered/Resolved]
  - Angina pectoris [Recovered/Resolved]
